FAERS Safety Report 19829564 (Version 2)
Quarter: 2021Q3

REPORT INFORMATION
  Report Type: Report from Study
  Country: CN (occurrence: CN)
  Receive Date: 20210914
  Receipt Date: 20210920
  Transmission Date: 20211014
  Serious: Yes (Death, Hospitalization)
  Sender: FDA-Public Use
  Company Number: CN-ROCHE-2742046

PATIENT
  Age: 68 Year
  Sex: Male
  Weight: 63 kg

DRUGS (14)
  1. AZASETRON HYDROCHLORIDE [Concomitant]
     Active Substance: AZASETRON HYDROCHLORIDE
     Indication: VOMITING
     Dates: start: 20201023, end: 20201023
  2. BICYCLOL [Concomitant]
     Active Substance: BICYCLOL
     Indication: HEPATIC FUNCTION ABNORMAL
     Dates: start: 20210104, end: 20210107
  3. LIDOCAINE HYDROCHLORIDE. [Concomitant]
     Active Substance: LIDOCAINE HYDROCHLORIDE
     Dates: start: 20210106, end: 20210106
  4. FOLIC ACID. [Concomitant]
     Active Substance: FOLIC ACID
     Dates: start: 20180606
  5. L?GLUTAMINE AND SODIUM GUALENATE [Concomitant]
     Dates: start: 20201231, end: 20210107
  6. PEMETREXED. [Suspect]
     Active Substance: PEMETREXED
     Indication: NON-SMALL CELL LUNG CANCER STAGE IV
     Dosage: ON 23/OCT/2020, HE RECEIVED MOST RECENT DOSE OF PEMETREXED PRIOR (800 MG) PRIOR TO ONSET OF SERIOUS
     Route: 042
     Dates: start: 20180607
  7. LEUCOGEN [Concomitant]
     Active Substance: LEUCOGEN
     Indication: WHITE BLOOD CELL COUNT INCREASED
     Dates: start: 20201023, end: 20201026
  8. LEUCOGEN [Concomitant]
     Active Substance: LEUCOGEN
     Dates: start: 20201113, end: 20201116
  9. METOCLOPRAMIDE DIHYDROCHLORIDE [Concomitant]
     Indication: VOMITING
     Dates: start: 20201023, end: 20201023
  10. ATEZOLIZUMAB. [Suspect]
     Active Substance: ATEZOLIZUMAB
     Indication: NON-SMALL CELL LUNG CANCER STAGE IV
     Dosage: ON 23/OCT/2020, HE RECEIVED MOST RECENT DOSE OF ATEZOLIZUMAB (1200 MG) PRIOR TO ONSET OF SERIOUS ADV
     Route: 041
     Dates: start: 20180607
  11. CISPLATIN. [Suspect]
     Active Substance: CISPLATIN
     Indication: NON-SMALL CELL LUNG CANCER STAGE IV
     Dosage: ON 10/AUG/2018, HE RECEIVED MOST RECENT DOSE OF CISPLATIN (120 MG) PRIOR TO ONSET OF SERIOUS ADVERSE
     Route: 042
     Dates: start: 20180607
  12. RABEPRAZOLE SODIUM. [Concomitant]
     Active Substance: RABEPRAZOLE SODIUM
     Dates: start: 20201022, end: 20201022
  13. OMEPRAZOLE SODIUM [Concomitant]
     Active Substance: OMEPRAZOLE SODIUM
     Dates: start: 20201231, end: 20210107
  14. LIDOCAINE HYDROCHLORIDE. [Concomitant]
     Active Substance: LIDOCAINE HYDROCHLORIDE
     Dates: start: 20201231, end: 20201231

REACTIONS (2)
  - Anaemia [Fatal]
  - Platelet count decreased [Fatal]

NARRATIVE: CASE EVENT DATE: 20201112
